FAERS Safety Report 9100452 (Version 1)
Quarter: 2013Q1

REPORT INFORMATION
  Report Type: Spontaneous
  Country: FR (occurrence: FR)
  Receive Date: 20130215
  Receipt Date: 20130215
  Transmission Date: 20140127
  Serious: Yes (Hospitalization)
  Sender: FDA-Public Use
  Company Number: FR-PFIZER INC-2013058744

PATIENT
  Age: 87 Year
  Sex: Male

DRUGS (3)
  1. CORDARONE [Suspect]
     Indication: ATRIAL FIBRILLATION
     Dosage: 200 MG, DAILY
     Route: 048
     Dates: end: 201212
  2. ASPEGIC [Concomitant]
  3. TRINIPATCH [Concomitant]

REACTIONS (4)
  - Hyponatraemia [Recovered/Resolved]
  - Oedema peripheral [Unknown]
  - Psychomotor retardation [Unknown]
  - Fall [Unknown]
